FAERS Safety Report 8539547-5 (Version None)
Quarter: 2012Q3

REPORT INFORMATION
  Report Type: 
  Country: None (occurrence: None)
  Receive Date: 20120726
  Receipt Date: 20120718
  Transmission Date: 20120928
  Serious: Yes (Other)
  Sender: FDA-Public Use
  Company Number: US-ELI_LILLY_AND_COMPANY-US201207006357

PATIENT
  Age: 54 Year
  Sex: Male

DRUGS (4)
  1. ZOLPIDEM [Concomitant]
  2. LYRICA [Concomitant]
  3. CIALIS [Suspect]
     Dosage: 20 MG, UNK
     Dates: start: 20120412
  4. LEVOTHYROXINE SODIUM [Concomitant]

REACTIONS (1)
  - VISUAL IMPAIRMENT [None]
